FAERS Safety Report 13502525 (Version 1)
Quarter: 2017Q2

REPORT INFORMATION
  Report Type: Spontaneous
  Country: US (occurrence: US)
  Receive Date: 20170502
  Receipt Date: 20170502
  Transmission Date: 20170830
  Serious: No
  Sender: FDA-Public Use
  Company Number: US-AUROBINDO-AUR-APL-2016-12203

PATIENT
  Sex: Female
  Weight: 45.35 kg

DRUGS (4)
  1. ASPIRIN                            /00002701/ [Concomitant]
     Active Substance: ASPIRIN
     Indication: PRODUCT USED FOR UNKNOWN INDICATION
     Route: 065
  2. PREDNISONE. [Concomitant]
     Active Substance: PREDNISONE
     Indication: PRODUCT USED FOR UNKNOWN INDICATION
     Route: 065
  3. MINOCYCLINE HYDROCHLORIDE CAPSULES USP 100 MG [Suspect]
     Active Substance: MINOCYCLINE HYDROCHLORIDE
     Indication: PEMPHIGOID
     Dosage: 2 CAPSULES PER DAY BUT NOW 1 CAPSULE PER DAY
     Route: 065
     Dates: start: 20160712
  4. AMLODIPINE [Concomitant]
     Active Substance: AMLODIPINE BESYLATE
     Indication: PRODUCT USED FOR UNKNOWN INDICATION
     Route: 065

REACTIONS (1)
  - Tooth discolouration [Not Recovered/Not Resolved]
